FAERS Safety Report 26052925 (Version 1)
Quarter: 2025Q4

REPORT INFORMATION
  Report Type: Spontaneous
  Country: JP (occurrence: JP)
  Receive Date: 20251117
  Receipt Date: 20251117
  Transmission Date: 20260118
  Serious: Yes (Other)
  Sender: BAXTER
  Company Number: JP-MLMSERVICE-20251103-PI698380-00128-1

PATIENT
  Age: 50 Year
  Sex: Female

DRUGS (7)
  1. DOXORUBICIN [Suspect]
     Active Substance: DOXORUBICIN
     Indication: Post transplant lymphoproliferative disorder
     Dosage: UNK (AFTER SECOND COURSE OF CHEMOTHERAPY)
     Route: 065
     Dates: start: 2024, end: 2024
  2. CYCLOPHOSPHAMIDE [Suspect]
     Active Substance: CYCLOPHOSPHAMIDE
     Indication: Post transplant lymphoproliferative disorder
     Route: 065
     Dates: start: 2024, end: 2024
  3. RITUXIMAB [Suspect]
     Active Substance: RITUXIMAB
     Indication: Post transplant lymphoproliferative disorder
     Route: 065
     Dates: start: 2024, end: 2024
  4. PREDNISOLONE [Suspect]
     Active Substance: PREDNISOLONE
     Indication: Immunosuppressant drug therapy
     Dosage: PREDNISOLONE WAS REDUCED TO 2..5 MG/DAY; AND ALSO CONTINUED AS CHEMOTHERAPY
     Route: 065
     Dates: start: 2024, end: 2024
  5. PREDNISOLONE [Suspect]
     Active Substance: PREDNISOLONE
     Indication: Post transplant lymphoproliferative disorder
     Dosage: PREDNISOLONE WAS REDUCED TO 1 MG/DAY; AND ALSO CONTINUED AS CHEMOTHERAPY
     Route: 065
     Dates: start: 2024, end: 2024
  6. TACROLIMUS [Suspect]
     Active Substance: TACROLIMUS
     Indication: Immunosuppressant drug therapy
     Dosage: TACROLIMUS WAS REDUCED TO 2..5 MG/DAY; AND ALSO CONTINUED AS CHEMOTHERAPY
     Route: 065
     Dates: start: 2024
  7. TACROLIMUS [Suspect]
     Active Substance: TACROLIMUS
     Indication: Post transplant lymphoproliferative disorder
     Dosage: TACROLIMUS WAS REDUCED TO 1 MG/DAY; AND ALSO CONTINUED AS CHEMOTHERAPY
     Route: 065
     Dates: start: 2024

REACTIONS (1)
  - Cytomegalovirus chorioretinitis [Recovered/Resolved]
